FAERS Safety Report 15355117 (Version 2)
Quarter: 2018Q4

REPORT INFORMATION
  Report Type: Spontaneous
  Country: US (occurrence: US)
  Receive Date: 20180906
  Receipt Date: 20181026
  Transmission Date: 20190204
  Serious: No
  Sender: FDA-Public Use
  Company Number: US-PFIZER INC-2018359008

PATIENT
  Age: 77 Year
  Sex: Female

DRUGS (2)
  1. VFEND [Suspect]
     Active Substance: VORICONAZOLE
     Indication: PNEUMONIA
  2. VFEND [Suspect]
     Active Substance: VORICONAZOLE
     Indication: MYELOID LEUKAEMIA
     Dosage: 200 MG, 2X/DAY
     Route: 048

REACTIONS (2)
  - Dysphagia [Unknown]
  - Product use in unapproved indication [Unknown]
